FAERS Safety Report 8505809 (Version 2)
Quarter: 2013Q4

REPORT INFORMATION
  Report Type: Spontaneous
  Country: US (occurrence: US)
  Receive Date: 20120412
  Receipt Date: 20131209
  Transmission Date: 20140711
  Serious: Yes (Other)
  Sender: FDA-Public Use
  Company Number: US-BAYER-2012-033346

PATIENT
  Age: 27 Year
  Sex: Female
  Weight: 54 kg

DRUGS (1)
  1. YASMIN [Suspect]
     Dosage: UNK
     Route: 048
     Dates: start: 200603, end: 200912

REACTIONS (8)
  - Gallbladder disorder [None]
  - Post cholecystectomy syndrome [None]
  - Cholecystitis chronic [None]
  - Injury [None]
  - Gallbladder pain [None]
  - Anxiety [None]
  - Psychological trauma [None]
  - Pain [None]
